FAERS Safety Report 4948701-0 (Version None)
Quarter: 2006Q1

REPORT INFORMATION
  Report Type: 
  Country: None (occurrence: None)
  Receive Date: 20060313
  Receipt Date: 20060302
  Transmission Date: 20060701
  Serious: Yes (Hospitalization, Other)
  Sender: FDA-Public Use
  Company Number: 2006009286

PATIENT
  Sex: Male

DRUGS (9)
  1. NEURONTIN [Suspect]
     Indication: GUILLAIN-BARRE SYNDROME
     Dosage: 1800 MG (600 MG, 3 IN 1 D), ORAL
     Route: 048
  2. NITROFURANTOIN [Concomitant]
  3. MIRTAZAPINE [Concomitant]
  4. ESOMEPRAZOLE (ESOMEPRAZOLE) [Concomitant]
  5. TRAMADOL HCL [Concomitant]
  6. KALINOR-BRAUSETABLETTEN (POTASSIUM CARBONATE, POTASSIUM CITRATE) [Concomitant]
  7. ENOXAPARIN SODIUM [Concomitant]
  8. FLOXAL EYEDROPS (BENZALKONIUM CHLORIDE, OFLOXACIN) [Concomitant]
  9. BEPANTEN (DEXPANTHENOL) [Concomitant]

REACTIONS (8)
  - AORTIC ANEURYSM [None]
  - CHOLELITHIASIS [None]
  - COAGULOPATHY [None]
  - INCORRECT DOSE ADMINISTERED [None]
  - INCORRECT DRUG DOSAGE FORM ADMINISTERED [None]
  - JAUNDICE CHOLESTATIC [None]
  - PLATELET COUNT DECREASED [None]
  - TRANSAMINASES INCREASED [None]
